FAERS Safety Report 10087104 (Version 2)
Quarter: 2014Q2

REPORT INFORMATION
  Report Type: Spontaneous
  Country: DE (occurrence: DE)
  Receive Date: 20140418
  Receipt Date: 20140418
  Transmission Date: 20141212
  Serious: Yes (Other)
  Sender: FDA-Public Use
  Company Number: DE-ALEXION PHARMACEUTICALS INC.-A201400306

PATIENT
  Sex: 0

DRUGS (5)
  1. SOLIRIS 300MG [Suspect]
     Indication: PAROXYSMAL NOCTURNAL HAEMOGLOBINURIA
     Dosage: 600 MG, QW
     Route: 042
     Dates: start: 201012
  2. SOLIRIS 300MG [Suspect]
     Dosage: 900 MG, EVERY 21 DAYS
     Route: 042
     Dates: start: 201012
  3. CALCIUM [Concomitant]
     Indication: DRUG THERAPY
     Dosage: 1000 MG, UNK
     Route: 048
  4. ROCALTROL [Concomitant]
     Indication: DRUG THERAPY
     Dosage: 0.25 ?G, UNK
     Route: 048
  5. L-THYROXINE                        /00068001/ [Concomitant]
     Indication: DRUG THERAPY
     Dosage: 100 ?G, UNK
     Route: 048

REACTIONS (2)
  - Pulmonary arterial hypertension [Unknown]
  - Dyspnoea exertional [Unknown]
